FAERS Safety Report 7766745-0 (Version None)
Quarter: 2011Q3

REPORT INFORMATION
  Report Type: 
  Country: None (occurrence: None)
  Receive Date: 20110922
  Receipt Date: 20100809
  Transmission Date: 20111222
  Serious: Yes (Other)
  Sender: FDA-Public Use
  Company Number: US-ASTRAZENECA-2008UW09039

PATIENT
  Age: 14171 Day
  Sex: Female
  Weight: 95.3 kg

DRUGS (9)
  1. SEROQUEL [Suspect]
     Indication: DEPRESSION
     Route: 048
     Dates: start: 20010101, end: 20070102
  2. SEROQUEL [Suspect]
     Dosage: 100-900 MG
     Route: 048
     Dates: start: 20040311
  3. SEROQUEL [Suspect]
     Dosage: 100-900 MG
     Route: 048
     Dates: start: 20040311
  4. DEPAKOTE [Concomitant]
     Dates: start: 20030101
  5. SEROQUEL [Suspect]
     Indication: ANXIETY
     Route: 048
     Dates: start: 20010101, end: 20070102
  6. SEROQUEL [Suspect]
     Indication: BIPOLAR DISORDER
     Route: 048
     Dates: start: 20010101, end: 20070102
  7. GEODON [Concomitant]
     Dates: start: 20030101
  8. SEROQUEL [Suspect]
     Dosage: 100-900 MG
     Route: 048
     Dates: start: 20040311
  9. ZOLOFT [Concomitant]
     Dates: start: 20030101

REACTIONS (6)
  - TYPE 2 DIABETES MELLITUS [None]
  - HYPERLIPIDAEMIA [None]
  - BLOOD CHOLESTEROL INCREASED [None]
  - DIABETIC COMA [None]
  - OBESITY [None]
  - DIABETIC COMPLICATION [None]
